FAERS Safety Report 15552069 (Version 2)
Quarter: 2018Q4

REPORT INFORMATION
  Report Type: Spontaneous
  Country: US (occurrence: US)
  Receive Date: 20181025
  Receipt Date: 20181207
  Transmission Date: 20190205
  Serious: No
  Sender: FDA-Public Use
  Company Number: US-PFIZER INC-2018433931

PATIENT
  Age: 59 Year
  Sex: Male

DRUGS (1)
  1. SODIUM CHLORIDE. [Suspect]
     Active Substance: SODIUM CHLORIDE
     Indication: COLON INJURY
     Dosage: UNK, SINGLE (ONE TIME USE)
     Route: 050
     Dates: start: 20180921, end: 20180921

REACTIONS (3)
  - Injection site pain [Unknown]
  - Injection site discolouration [Unknown]
  - Product use in unapproved indication [Unknown]

NARRATIVE: CASE EVENT DATE: 20180921
